FAERS Safety Report 8339477-8 (Version None)
Quarter: 2012Q2

REPORT INFORMATION
  Report Type: 
  Country: None (occurrence: None)
  Receive Date: 20120507
  Receipt Date: 20120425
  Transmission Date: 20120825
  Serious: Yes (Other)
  Sender: FDA-Public Use
  Company Number: PHHY2012BR036186

PATIENT
  Sex: Female

DRUGS (1)
  1. EXFORGE HCT [Suspect]
     Indication: HYPERTENSION
     Dosage: 1 DF (160 MG VALSAR, 5 MG AMLO AND 12.5 MG HYDRO) A DAY
     Route: 048

REACTIONS (7)
  - PRURITUS [None]
  - BLOOD CHOLESTEROL INCREASED [None]
  - BLOOD GLUCOSE INCREASED [None]
  - INSOMNIA [None]
  - POISONING [None]
  - HYPERSENSITIVITY [None]
  - ERYTHEMA [None]
